FAERS Safety Report 23208484 (Version 1)
Quarter: 2023Q4

REPORT INFORMATION
  Report Type: Spontaneous
  Country: US (occurrence: US)
  Receive Date: 20231121
  Receipt Date: 20231121
  Transmission Date: 20240110
  Serious: No
  Sender: FDA-Public Use
  Company Number: US-ABBVIE-5493897

PATIENT
  Sex: Male

DRUGS (1)
  1. VRAYLAR [Suspect]
     Active Substance: CARIPRAZINE
     Indication: Negative symptoms in schizophrenia
     Dosage: STRENGTH 1.5MG
     Route: 048

REACTIONS (5)
  - Hepatic function abnormal [Unknown]
  - Liver disorder [Unknown]
  - Hypersomnia [Unknown]
  - Toxicity to various agents [Unknown]
  - Mental disorder [Unknown]
